FAERS Safety Report 5487671-6 (Version None)
Quarter: 2007Q4

REPORT INFORMATION
  Report Type: 
  Country: None (occurrence: None)
  Receive Date: 20071017
  Receipt Date: 20071005
  Transmission Date: 20080405
  Serious: Yes (Hospitalization, Other)
  Sender: FDA-Public Use
  Company Number: PHBS2007JP15079

PATIENT
  Age: 32 Year
  Sex: Female

DRUGS (11)
  1. NEORAL [Suspect]
     Indication: PUSTULAR PSORIASIS
     Dosage: 3 MG/KG/D
     Route: 048
     Dates: start: 20020901
  2. NEORAL [Suspect]
     Dosage: 250 MG/DAY
     Dates: start: 20070130, end: 20070321
  3. NEORAL [Suspect]
     Dosage: 100 MG/DAY
     Route: 048
     Dates: start: 20060706, end: 20060823
  4. NEORAL [Suspect]
     Dosage: 150 MG/DAY
     Route: 048
     Dates: start: 20070125, end: 20070129
  5. PREDONINE [Concomitant]
     Indication: PUSTULAR PSORIASIS
     Dosage: 30 MG/D
     Route: 048
     Dates: start: 20061006
  6. PREDONINE [Concomitant]
     Dosage: 25 MG/D
     Route: 048
  7. PREDONINE [Concomitant]
     Dosage: 30 MG/DAY
     Route: 048
  8. PREDONINE [Concomitant]
     Dosage: 20 MG/DAY
     Route: 048
  9. PREDONINE [Concomitant]
     Dosage: 10 MG/DAY
     Route: 048
     Dates: end: 20070308
  10. PREDONINE [Concomitant]
     Dosage: 20 MG/DAY
     Route: 048
     Dates: start: 20070309, end: 20070319
  11. FAMOTIDINE [Concomitant]
     Indication: PROPHYLAXIS AGAINST GASTROINTESTINAL ULCER
     Dosage: 20 MG/DAY
     Route: 048
     Dates: start: 20061006, end: 20070321

REACTIONS (11)
  - ABDOMINAL DISCOMFORT [None]
  - AGITATION [None]
  - DRUG EXPOSURE DURING PREGNANCY [None]
  - ERYTHEMA [None]
  - HALLUCINATION [None]
  - HALLUCINATION, AUDITORY [None]
  - OEDEMA PERIPHERAL [None]
  - PREMATURE LABOUR [None]
  - PUSTULAR PSORIASIS [None]
  - RESTLESSNESS [None]
  - THREATENED LABOUR [None]
